FAERS Safety Report 5219184-0 (Version None)
Quarter: 2007Q1

REPORT INFORMATION
  Report Type: 
  Country: None (occurrence: None)
  Receive Date: 20070125
  Receipt Date: 20070123
  Transmission Date: 20070707
  Serious: Yes (Hospitalization)
  Sender: FDA-Public Use
  Company Number: NL-BRISTOL-MYERS SQUIBB COMPANY-13654017

PATIENT
  Age: 65 Year
  Sex: Female

DRUGS (3)
  1. CARBOPLATIN [Suspect]
     Indication: OVARIAN CANCER
     Route: 042
     Dates: start: 20061219
  2. CELECOXIB [Suspect]
     Indication: OVARIAN CANCER
     Route: 048
     Dates: start: 20061219
  3. DOCETAXEL [Suspect]
     Indication: OVARIAN CANCER
     Route: 042
     Dates: start: 20061219

REACTIONS (1)
  - ILEUS [None]
